FAERS Safety Report 17896183 (Version 8)
Quarter: 2020Q3

REPORT INFORMATION
  Report Type: Spontaneous
  Country: US (occurrence: US)
  Receive Date: 20200615
  Receipt Date: 20200807
  Transmission Date: 20201103
  Serious: No
  Sender: FDA-Public Use
  Company Number: US-AMGEN-USASP2020092847

PATIENT
  Age: 70 Year
  Sex: Male

DRUGS (3)
  1. NEULASTA [Suspect]
     Active Substance: PEGFILGRASTIM
     Dosage: 6 MILLIGRAM, Q2WK
     Route: 065
     Dates: start: 20200605
  2. NEULASTA [Suspect]
     Active Substance: PEGFILGRASTIM
     Dosage: 6 MILLIGRAM, Q2WK
     Route: 065
     Dates: start: 20200605
  3. NEULASTA [Suspect]
     Active Substance: PEGFILGRASTIM
     Indication: OESOPHAGEAL CARCINOMA
     Dosage: 6 MILLIGRAM, Q2WK
     Route: 065
     Dates: start: 20200605

REACTIONS (2)
  - Device malfunction [Unknown]
  - Off label use [Unknown]

NARRATIVE: CASE EVENT DATE: 20200605
